FAERS Safety Report 9688247 (Version 1)
Quarter: 2013Q4

REPORT INFORMATION
  Report Type: Spontaneous
  Country: US (occurrence: None)
  Receive Date: 20131113
  Receipt Date: 20131113
  Transmission Date: 20140711
  Serious: No
  Sender: FDA-Public Use
  Company Number: None

PATIENT
  Age: 72 Year
  Sex: Male
  Weight: 74.39 kg

DRUGS (1)
  1. NITROGLYCERIN TRANSDERMAL SYSTEM [Suspect]
     Indication: CARDIAC DISORDER
     Dosage: 1 PATCH ONCE DAILY APPLIED TO A SURFACE USUALLY THE SKIN
     Dates: start: 20131026, end: 20131112

REACTIONS (3)
  - Application site pain [None]
  - Product substitution issue [None]
  - Myalgia [None]
